FAERS Safety Report 7416550-X (Version None)
Quarter: 2011Q2

REPORT INFORMATION
  Report Type: 
  Country: None (occurrence: None)
  Receive Date: 20110415
  Receipt Date: 20110404
  Transmission Date: 20111010
  Serious: Yes (Other)
  Sender: FDA-Public Use
  Company Number: FR-AMGEN-FRASP2011002276

PATIENT
  Age: 54 Year
  Sex: Female
  Weight: 56 kg

DRUGS (2)
  1. ENBREL [Suspect]
     Dosage: 50 MG, WEEKLY
     Route: 058
     Dates: start: 20110202, end: 20110209
  2. ENBREL [Suspect]
     Indication: ANKYLOSING SPONDYLITIS
     Dosage: 50 MG, WEEKLY
     Route: 058
     Dates: start: 20110104

REACTIONS (13)
  - INJECTION SITE WARMTH [None]
  - NEUTROPENIC INFECTION [None]
  - INJECTION SITE REACTION [None]
  - COUGH [None]
  - PALLOR [None]
  - RESPIRATORY TRACT IRRITATION [None]
  - INJECTION SITE SWELLING [None]
  - FATIGUE [None]
  - NEUTROPENIA [None]
  - INJECTION SITE ERYTHEMA [None]
  - PRURITUS GENERALISED [None]
  - FORMICATION [None]
  - LEUKOPENIA [None]
